FAERS Safety Report 5804958-5 (Version None)
Quarter: 2008Q3

REPORT INFORMATION
  Report Type: 
  Country: None (occurrence: None)
  Receive Date: 20080709
  Receipt Date: 20080627
  Transmission Date: 20090109
  Serious: Yes (Hospitalization, Other)
  Sender: FDA-Public Use
  Company Number: US-PFIZER INC-2008043289

PATIENT
  Age: 54 Year
  Sex: Female
  Weight: 56 kg

DRUGS (12)
  1. LYRICA [Suspect]
     Indication: SPINAL OSTEOARTHRITIS
  2. NARCAN [Suspect]
  3. PAROXETINE HCL [Suspect]
  4. LUNESTA [Suspect]
  5. FLEXERIL [Suspect]
  6. MICROGESTIN FE [Concomitant]
  7. PERCOCET [Concomitant]
  8. OXAPROZIN [Concomitant]
     Dosage: DAILY DOSE:600MG
  9. VITAMIN CAP [Concomitant]
  10. CO-Q-10 [Concomitant]
  11. CREATININE [Concomitant]
  12. FLAXSEED OIL [Concomitant]

REACTIONS (10)
  - AMNESIA [None]
  - ANTIDEPRESSANT DRUG LEVEL [None]
  - CONFUSIONAL STATE [None]
  - DISCOMFORT [None]
  - DRUG ADMINISTRATION ERROR [None]
  - INSOMNIA [None]
  - LETHARGY [None]
  - MENTAL STATUS CHANGES [None]
  - RESTLESSNESS [None]
  - WITHDRAWAL SYNDROME [None]
